FAERS Safety Report 24456444 (Version 2)
Quarter: 2024Q4

REPORT INFORMATION
  Report Type: Report from Study
  Country: US (occurrence: US)
  Receive Date: 20241017
  Receipt Date: 20241018
  Transmission Date: 20250115
  Serious: No
  Sender: ROCHE
  Company Number: US-ROCHE-3508408

PATIENT
  Age: 58 Year
  Sex: Female

DRUGS (3)
  1. RITUXAN [Suspect]
     Active Substance: RITUXIMAB
     Indication: Rheumatoid arthritis
     Dosage: EVERY 6 MONTHS
     Route: 065
     Dates: start: 202306
  2. LUCENTIS [Suspect]
     Active Substance: RANIBIZUMAB
     Indication: Product used for unknown indication
     Route: 065
  3. ORENCIA [Concomitant]
     Active Substance: ABATACEPT

REACTIONS (2)
  - Drug ineffective [Unknown]
  - No adverse event [Unknown]
